FAERS Safety Report 4451675-2 (Version None)
Quarter: 2004Q3

REPORT INFORMATION
  Report Type: 
  Country: None (occurrence: None)
  Receive Date: 20040915
  Receipt Date: 20030129
  Transmission Date: 20050211
  Serious: Yes (Hospitalization)
  Sender: FDA-Public Use
  Company Number: 2004232410CA

PATIENT
  Age: 25 Year
  Sex: Female

DRUGS (3)
  1. ZYVOX [Suspect]
     Indication: STAPHYLOCOCCAL BACTERAEMIA
     Dosage: 600 MG, BID, IV
     Route: 042
     Dates: start: 20021027, end: 20021028
  2. VANCOMYCIN [Concomitant]
  3. CIPROFLOXACIN [Concomitant]

REACTIONS (1)
  - BACTERAEMIA [None]
